FAERS Safety Report 23206738 (Version 2)
Quarter: 2023Q4

REPORT INFORMATION
  Report Type: Spontaneous
  Country: PT (occurrence: PT)
  Receive Date: 20231120
  Receipt Date: 20231220
  Transmission Date: 20240109
  Serious: Yes (Other)
  Sender: FDA-Public Use
  Company Number: PT-009507513-2311PRT006461

PATIENT
  Age: 64 Year
  Sex: Female

DRUGS (3)
  1. PEMBROLIZUMAB [Suspect]
     Active Substance: PEMBROLIZUMAB
     Indication: Triple negative breast cancer
     Dosage: 200 MILLIGRAM, Q3W
     Dates: start: 20230515, end: 20231016
  2. CARBOPLATIN [Suspect]
     Active Substance: CARBOPLATIN
     Indication: Triple negative breast cancer
     Dosage: AUC 2, QW
     Dates: start: 20230515, end: 20231016
  3. PACLITAXEL [Suspect]
     Active Substance: PACLITAXEL
     Indication: Triple negative breast cancer
     Dosage: 80 MILLIGRAM/SQ. METER, QW
     Dates: start: 20230515, end: 20231016

REACTIONS (7)
  - Febrile neutropenia [Recovered/Resolved]
  - Device related thrombosis [Unknown]
  - Peripheral sensory neuropathy [Recovered/Resolved]
  - Therapy partial responder [Unknown]
  - Asthenia [Recovered/Resolved]
  - Anaemia [Recovered/Resolved]
  - Diarrhoea [Recovered/Resolved]

NARRATIVE: CASE EVENT DATE: 20230101
